FAERS Safety Report 6084607-4 (Version None)
Quarter: 2009Q1

REPORT INFORMATION
  Report Type: 
  Country: None (occurrence: None)
  Receive Date: 20090219
  Receipt Date: 20090212
  Transmission Date: 20090719
  Serious: Yes (Hospitalization)
  Sender: FDA-Public Use
  Company Number: AU-ALLERGAN-0901603US

PATIENT
  Sex: Female
  Weight: 65 kg

DRUGS (1)
  1. BOTOX [Suspect]
     Indication: NEUROGENIC BLADDER
     Dosage: 300 UNITS, SINGLE
     Route: 043
     Dates: start: 20061214, end: 20061214

REACTIONS (5)
  - BIOPSY MUSCLE ABNORMAL [None]
  - MUSCLE ATROPHY [None]
  - MUSCULAR WEAKNESS [None]
  - MYALGIA [None]
  - PAIN [None]
